FAERS Safety Report 11967248 (Version 1)
Quarter: 2016Q1

REPORT INFORMATION
  Report Type: Spontaneous
  Country: TR (occurrence: TR)
  Receive Date: 20160127
  Receipt Date: 20160127
  Transmission Date: 20160526
  Serious: Yes (Hospitalization)
  Sender: FDA-Public Use
  Company Number: TR-CORDEN PHARMA LATINA S.P.A.-TR-2016COR000011

PATIENT
  Sex: Female

DRUGS (3)
  1. VINCRISTINE [Suspect]
     Active Substance: VINCRISTINE
     Indication: MEDULLOBLASTOMA
     Dosage: UNK
  2. LOMUSTINE. [Suspect]
     Active Substance: LOMUSTINE
     Indication: MEDULLOBLASTOMA
     Dosage: UNK
  3. CISPLATIN. [Suspect]
     Active Substance: CISPLATIN
     Dosage: UNK

REACTIONS (5)
  - Cyanosis [Unknown]
  - Raynaud^s phenomenon [Unknown]
  - Pain in extremity [Unknown]
  - Pallor [Unknown]
  - Erythema [Unknown]
